FAERS Safety Report 5862702-X (Version None)
Quarter: 2008Q3

REPORT INFORMATION
  Report Type: 
  Country: None (occurrence: None)
  Receive Date: 20080827
  Receipt Date: 20080827
  Transmission Date: 20090109
  Serious: Yes (Hospitalization)
  Sender: FDA-Public Use
  Company Number: None

PATIENT
  Age: 40 Year
  Sex: Female
  Weight: 108.8633 kg

DRUGS (1)
  1. LISINOPRIL [Suspect]
     Indication: HYPERTENSION
     Dosage: 40MG DAILY PO
     Route: 048
     Dates: start: 20030906, end: 20080730

REACTIONS (17)
  - ABDOMINAL PAIN UPPER [None]
  - ASTHENIA [None]
  - BACK PAIN [None]
  - BURNING SENSATION [None]
  - DYSPNOEA [None]
  - FATIGUE [None]
  - GASTROOESOPHAGEAL REFLUX DISEASE [None]
  - HYPERTENSION [None]
  - LOSS OF LIBIDO [None]
  - MUSCLE TWITCHING [None]
  - MUSCULOSKELETAL CHEST PAIN [None]
  - MYALGIA [None]
  - NEUROLOGICAL SYMPTOM [None]
  - PALPITATIONS [None]
  - PRODUCTIVE COUGH [None]
  - SENSATION OF FOREIGN BODY [None]
  - URINE OUTPUT DECREASED [None]
